FAERS Safety Report 9326046 (Version 1)
Quarter: 2013Q2

REPORT INFORMATION
  Report Type: Report from Study
  Country: US (occurrence: US)
  Receive Date: 20130604
  Receipt Date: 20130604
  Transmission Date: 20140414
  Serious: Yes (Hospitalization)
  Sender: FDA-Public Use
  Company Number: US-SANOFI-AVENTIS-2013SA055263

PATIENT
  Sex: Male

DRUGS (1)
  1. AUBAGIO [Suspect]
     Indication: MULTIPLE SCLEROSIS
     Dosage: PRODUCT STARTED 3 MONTHS AGO
     Route: 048

REACTIONS (3)
  - Pneumonia aspiration [Unknown]
  - Multiple sclerosis relapse [Unknown]
  - Speech disorder [Unknown]
